FAERS Safety Report 8318872-7 (Version None)
Quarter: 2012Q2

REPORT INFORMATION
  Report Type: 
  Country: None (occurrence: None)
  Receive Date: 20120426
  Receipt Date: 20120426
  Transmission Date: 20120825
  Serious: Yes (Hospitalization)
  Sender: FDA-Public Use
  Company Number: None

PATIENT
  Sex: Female
  Weight: 122.4712 kg

DRUGS (1)
  1. ESTRACE [Suspect]
     Dates: start: 20090710

REACTIONS (2)
  - PAIN [None]
  - ENDOMETRIAL CANCER [None]
